FAERS Safety Report 5897591-0 (Version None)
Quarter: 2008Q3

REPORT INFORMATION
  Report Type: 
  Country: None (occurrence: None)
  Receive Date: 20080829
  Receipt Date: 20080722
  Transmission Date: 20090109
  Serious: Yes (Death)
  Sender: FDA-Public Use
  Company Number: PHEH2008US06460

PATIENT
  Age: 77 Year
  Sex: Male

DRUGS (2)
  1. EXJADE [Suspect]
     Indication: ACUTE LEUKAEMIA
     Dates: end: 20080401
  2. EXJADE [Suspect]
     Indication: MYELODYSPLASTIC SYNDROME
     Dates: end: 20080401

REACTIONS (3)
  - ACUTE MYELOID LEUKAEMIA [None]
  - HAEMORRHAGE [None]
  - THROMBOSIS [None]
